FAERS Safety Report 23457455 (Version 1)
Quarter: 2024Q1

REPORT INFORMATION
  Report Type: Spontaneous
  Country: HK (occurrence: HK)
  Receive Date: 20240130
  Receipt Date: 20240130
  Transmission Date: 20240410
  Serious: Yes (Other)
  Sender: FDA-Public Use
  Company Number: HK-PFIZER INC-PV202400012603

PATIENT

DRUGS (1)
  1. LORLATINIB [Suspect]
     Active Substance: LORLATINIB
     Dosage: 100 MG

REACTIONS (4)
  - Hepatotoxicity [Unknown]
  - Hyperglycaemia [Unknown]
  - Eye symptom [Unknown]
  - Alanine aminotransferase abnormal [Unknown]
